FAERS Safety Report 24579246 (Version 3)
Quarter: 2024Q4

REPORT INFORMATION
  Report Type: Spontaneous
  Country: US (occurrence: US)
  Receive Date: 20241105
  Receipt Date: 20241209
  Transmission Date: 20250115
  Serious: Yes (Other)
  Sender: AUROBINDO
  Company Number: US-AUROBINDO-AUR-APL-2024-053138

PATIENT

DRUGS (1)
  1. ARMODAFINIL [Suspect]
     Active Substance: ARMODAFINIL
     Indication: Product used for unknown indication
     Dosage: UNK
     Route: 065

REACTIONS (7)
  - Narcolepsy [Unknown]
  - Cataplexy [Unknown]
  - Somnolence [Unknown]
  - Impaired driving ability [Unknown]
  - Impaired work ability [Unknown]
  - Therapeutic response changed [Unknown]
  - Product substitution issue [Unknown]
